FAERS Safety Report 23589052 (Version 2)
Quarter: 2024Q1

REPORT INFORMATION
  Report Type: Spontaneous
  Country: PL (occurrence: PL)
  Receive Date: 20240303
  Receipt Date: 20240312
  Transmission Date: 20240410
  Serious: Yes (Death, Hospitalization, Other)
  Sender: FDA-Public Use
  Company Number: None

PATIENT
  Age: 12 Year
  Sex: Female

DRUGS (8)
  1. CYCLOPHOSPHAMIDE [Suspect]
     Active Substance: CYCLOPHOSPHAMIDE
     Dosage: 3 DOSES ROUTE OF ADMIN (FREE TEXT): UNKNOWN ROUTE
     Route: 065
     Dates: start: 2021
  2. CYCLOPHOSPHAMIDE [Suspect]
     Active Substance: CYCLOPHOSPHAMIDE
     Indication: Acute lymphocytic leukaemia
     Dosage: RANDOMIZED TO ARM A ACCORDING TO THE ESPHALL2017 PROTOCOL ROUTE OF ADMIN (FREE TEXT): UNKNOWN ROUTE
     Route: 065
  3. DOXORUBICIN [Suspect]
     Active Substance: DOXORUBICIN
     Indication: Acute lymphocytic leukaemia
     Dosage: RANDOMIZED TO ARM A ACCORDING TO THE ESPHALL2017 PROTOCOL ROUTE OF ADMIN (FREE TEXT): UNKNOWN ROUTE
     Route: 065
  4. IFOSFAMIDE [Suspect]
     Active Substance: IFOSFAMIDE
     Indication: Acute lymphocytic leukaemia
     Dosage: RANDOMIZED TO ARM A ACCORDING TO THE ESPHALL2017 PROTOCOL ROUTE OF ADMIN (FREE TEXT): UNKNOWN ROUTE
     Route: 065
  5. METHOTREXATE [Suspect]
     Active Substance: METHOTREXATE
     Indication: Acute lymphocytic leukaemia
     Dosage: ON THE FIRST DAY OF BLOCK 1, THE PATIENT RECEIVED A HIGH DOSE OF 5G/M2 ROUTE OF ADMIN (FREE TEXT): U
     Route: 065
     Dates: start: 202109
  6. METHOTREXATE [Suspect]
     Active Substance: METHOTREXATE
     Dosage: UNK, ROUTE OF ADMIN (FREE TEXT): UNKNOWN ROUTE
     Route: 065
     Dates: start: 2021
  7. VINCRISTINE [Suspect]
     Active Substance: VINCRISTINE
     Indication: Acute lymphocytic leukaemia
     Dosage: UNK ROUTE OF ADMIN (FREE TEXT): UNKNOWN ROUTE
     Route: 065
     Dates: start: 2021
  8. IMATINIB [Concomitant]
     Active Substance: IMATINIB
     Indication: Acute lymphocytic leukaemia
     Dosage: AT A DOSE OF 340 MG/M2 FROM DAY 15 OF THE THERAPY, CONTINUE TREATMENT ACCORDING TO ESPHALL2017/COGAA
     Route: 065

REACTIONS (9)
  - Death [Fatal]
  - Hepatotoxicity [Unknown]
  - Pancytopenia [Unknown]
  - Electrolyte imbalance [Unknown]
  - Hypertriglyceridaemia [Unknown]
  - Hypoalbuminaemia [Unknown]
  - Coagulopathy [Unknown]
  - Infection [Unknown]
  - Aplasia [Unknown]
